FAERS Safety Report 7104908-8 (Version None)
Quarter: 2010Q4

REPORT INFORMATION
  Report Type: 
  Country: None (occurrence: None)
  Receive Date: 20101116
  Receipt Date: 20101108
  Transmission Date: 20110411
  Serious: No
  Sender: FDA-Public Use
  Company Number: US-ROXANE LABORATORIES, INC.-2010-RO-01475RO

PATIENT
  Sex: Male

DRUGS (1)
  1. FLUTICASONE PROPIONATE [Suspect]
     Indication: SINUSITIS
     Route: 045
     Dates: start: 20100424, end: 20100424

REACTIONS (5)
  - DEHYDRATION [None]
  - DIZZINESS [None]
  - HYPOTONIA [None]
  - SYNCOPE [None]
  - TREMOR [None]
